FAERS Safety Report 15485641 (Version 2)
Quarter: 2018Q4

REPORT INFORMATION
  Report Type: Spontaneous
  Country: CO (occurrence: CO)
  Receive Date: 20181010
  Receipt Date: 20181102
  Transmission Date: 20190205
  Serious: Yes (Other)
  Sender: FDA-Public Use
  Company Number: CO-BIOMARINAP-CO-2018-120278

PATIENT
  Age: 13 Year

DRUGS (1)
  1. VIMIZIM [Suspect]
     Active Substance: ELOSULFASE ALFA
     Indication: MUCOPOLYSACCHARIDOSIS
     Route: 065

REACTIONS (3)
  - Autonomic nervous system imbalance [Unknown]
  - Chest discomfort [Unknown]
  - Tachycardia [Unknown]
